FAERS Safety Report 6432879-6 (Version None)
Quarter: 2009Q4

REPORT INFORMATION
  Report Type: 
  Country: None (occurrence: None)
  Receive Date: 20091109
  Receipt Date: 20091105
  Transmission Date: 20100525
  Serious: Yes (Hospitalization)
  Sender: FDA-Public Use
  Company Number: FR-EISAI INC.-E2090-00849-SPO-FR

PATIENT
  Sex: Female

DRUGS (2)
  1. ZONEGRAN [Suspect]
     Indication: EPILEPSY
     Route: 048
     Dates: start: 20090414, end: 20090522
  2. TRILEPTAL [Concomitant]
     Indication: EPILEPSY
     Route: 048
     Dates: start: 19950101

REACTIONS (2)
  - AGRANULOCYTOSIS [None]
  - ASTHENIA [None]
